FAERS Safety Report 6408982-3 (Version None)
Quarter: 2009Q4

REPORT INFORMATION
  Report Type: 
  Country: None (occurrence: None)
  Receive Date: 20091021
  Receipt Date: 20091012
  Transmission Date: 20100525
  Serious: Yes (Hospitalization)
  Sender: FDA-Public Use
  Company Number: ZA-SANOFI-SYNTHELABO-A01200910249

PATIENT
  Age: 50 Year
  Sex: Female

DRUGS (6)
  1. STEMETIL [Concomitant]
     Indication: HELICOBACTER INFECTION
     Route: 048
  2. NEXIUM [Concomitant]
     Indication: HELICOBACTER INFECTION
     Dosage: UNK
     Route: 048
  3. SYNAP FORTE [Concomitant]
     Indication: DRUG USE FOR UNKNOWN INDICATION
     Dosage: UNK
     Route: 048
  4. BRAZEPAM [Concomitant]
     Indication: DRUG USE FOR UNKNOWN INDICATION
     Route: 048
     Dates: start: 20090701
  5. STILNOX [Concomitant]
     Indication: DRUG USE FOR UNKNOWN INDICATION
     Dosage: UNK
     Route: 065
     Dates: end: 20090901
  6. STILNOX MR [Suspect]
     Indication: DRUG USE FOR UNKNOWN INDICATION
     Route: 048
     Dates: start: 20090906, end: 20090901

REACTIONS (2)
  - MYOCLONUS [None]
  - PARTIAL SEIZURES [None]
